FAERS Safety Report 10740779 (Version 1)
Quarter: 2015Q1

REPORT INFORMATION
  Report Type: Spontaneous
  Country: AU (occurrence: None)
  Receive Date: 20150123
  Receipt Date: 20150123
  Transmission Date: 20150721
  Serious: Yes (Other)
  Sender: FDA-Public Use
  Company Number: IPC201501-000012

PATIENT
  Age: 60 Year
  Sex: Female

DRUGS (6)
  1. ENALAPRIL [Concomitant]
     Active Substance: ENALAPRIL
  2. METOPROLOL TARTRATE (METOPROLOL TARTRATE) (METOPROLOL TARTRATE) [Suspect]
     Active Substance: METOPROLOL TARTRATE
  3. DRONEDARONE (DRONEDARONE) (UNKNOWN) (DRONEDARONE) [Suspect]
     Active Substance: DRONEDARONE
  4. PRAVASTATIN [Concomitant]
     Active Substance: PRAVASTATIN\PRAVASTATIN SODIUM
  5. WARFARIN [Concomitant]
     Active Substance: WARFARIN
  6. ACETYLSALICYLIC ACID [Concomitant]
     Active Substance: ASPIRIN

REACTIONS (10)
  - Oedema peripheral [None]
  - Chronic kidney disease [None]
  - Cardiac failure [None]
  - Depersonalisation [None]
  - Dyspnoea [None]
  - Visual impairment [None]
  - Hypertension [None]
  - Nausea [None]
  - Dizziness [None]
  - Dysuria [None]
